FAERS Safety Report 9156848 (Version 1)
Quarter: 2013Q1

REPORT INFORMATION
  Report Type: Spontaneous
  Country: US (occurrence: US)
  Receive Date: 20130312
  Receipt Date: 20130312
  Transmission Date: 20140127
  Serious: Yes (Hospitalization, Other)
  Sender: FDA-Public Use
  Company Number: US-BAYER-2013-028331

PATIENT
  Age: 44 Year
  Sex: Female
  Weight: 81.63 kg

DRUGS (7)
  1. YASMIN [Suspect]
     Indication: CONTRACEPTION
  2. YASMIN [Suspect]
     Indication: MENORRHAGIA
  3. YASMIN [Suspect]
     Indication: DYSMENORRHOEA
  4. PREVACID [Concomitant]
     Indication: GASTROOESOPHAGEAL REFLUX DISEASE
     Dosage: 30 MG, DAILY
  5. MOTRIN [Concomitant]
     Dosage: PRN
  6. DIURETICS [Concomitant]
     Dosage: PRN
  7. LORTAB [Concomitant]
     Indication: PAIN

REACTIONS (2)
  - Thrombosis mesenteric vessel [None]
  - Cholecystitis acute [None]
